FAERS Safety Report 17863303 (Version 6)
Quarter: 2020Q3

REPORT INFORMATION
  Report Type: Spontaneous
  Country: US (occurrence: US)
  Receive Date: 20200604
  Receipt Date: 20200807
  Transmission Date: 20201103
  Serious: Yes (Death, Hospitalization)
  Sender: FDA-Public Use
  Company Number: US-BIOMARINAP-US-2020-130550

PATIENT
  Age: 32 Year
  Sex: Female
  Weight: 50.9 kg

DRUGS (1)
  1. NAGLAZYME [Suspect]
     Active Substance: GALSULFASE
     Indication: MUCOPOLYSACCHARIDOSIS VI
     Dosage: 60 MILLIGRAM, QW
     Route: 042
     Dates: start: 20060726

REACTIONS (19)
  - Joint lock [Unknown]
  - Asthenia [Unknown]
  - Device dislocation [Unknown]
  - Confusional state [Unknown]
  - Cervical cord compression [Fatal]
  - Cerebrospinal fluid leakage [Unknown]
  - Musculoskeletal stiffness [Unknown]
  - Fall [Unknown]
  - Walking disability [Unknown]
  - Clumsiness [Unknown]
  - Hypoaesthesia [Unknown]
  - Pain in extremity [Unknown]
  - Neck pain [Unknown]
  - Dyspnoea [Recovering/Resolving]
  - Hemiparesis [Unknown]
  - Post procedural swelling [Unknown]
  - Contusion [Unknown]
  - Muscular weakness [Unknown]
  - Paraplegia [Unknown]

NARRATIVE: CASE EVENT DATE: 202005
